FAERS Safety Report 9003163 (Version 1)
Quarter: 2013Q1

REPORT INFORMATION
  Report Type: Spontaneous
  Country: US (occurrence: US)
  Receive Date: 20130108
  Receipt Date: 20130108
  Transmission Date: 20140127
  Serious: Yes (Other)
  Sender: FDA-Public Use
  Company Number: US-PFIZER INC-2013004885

PATIENT
  Age: 69 Year
  Sex: Male
  Weight: 99.77 kg

DRUGS (1)
  1. VIAGRA [Suspect]
     Indication: BLOOD TESTOSTERONE ABNORMAL
     Dosage: 100 MG, AS NEEDED

REACTIONS (4)
  - Neoplasm malignant [Unknown]
  - Weight decreased [Unknown]
  - Hypertension [Unknown]
  - Heart rate increased [Unknown]
